FAERS Safety Report 7654148-9 (Version None)
Quarter: 2011Q3

REPORT INFORMATION
  Report Type: 
  Country: None (occurrence: None)
  Receive Date: 20110803
  Receipt Date: 20110725
  Transmission Date: 20111222
  Serious: Yes (Other)
  Sender: FDA-Public Use
  Company Number: BR-ASTRAZENECA-2011SE44971

PATIENT
  Age: 51 Year
  Sex: Male
  Weight: 108 kg

DRUGS (2)
  1. AMLODIPINE [Suspect]
     Indication: HYPERTENSION
     Route: 048
     Dates: end: 20110701
  2. ATACAND HCT [Suspect]
     Indication: HYPERTENSION
     Dosage: 16+12.5 MG DAILY
     Route: 048
     Dates: start: 20080101, end: 20110701

REACTIONS (4)
  - BLOOD PRESSURE INADEQUATELY CONTROLLED [None]
  - OEDEMA PERIPHERAL [None]
  - NECK MASS [None]
  - DRUG INEFFECTIVE [None]
